FAERS Safety Report 5676096-6 (Version None)
Quarter: 2008Q1

REPORT INFORMATION
  Report Type: 
  Country: None (occurrence: None)
  Receive Date: 20080321
  Receipt Date: 20080312
  Transmission Date: 20080703
  Serious: Yes (Hospitalization)
  Sender: FDA-Public Use
  Company Number: JP-BAYER-200810282BYL

PATIENT
  Age: 75 Year
  Sex: Female
  Weight: 61 kg

DRUGS (5)
  1. FLUDARA [Suspect]
     Indication: B-CELL LYMPHOMA
     Dosage: AS USED: 50 MG  UNIT DOSE: 10 MG
     Route: 048
     Dates: start: 20080201, end: 20080205
  2. OMEPRAL [Concomitant]
     Indication: REFLUX OESOPHAGITIS
     Dosage: TOTAL DAILY DOSE: 20 MG
     Route: 048
     Dates: start: 20071203
  3. BAYCARON [Concomitant]
     Indication: HYPERTENSION
     Dosage: TOTAL DAILY DOSE: 25 MG
     Route: 048
     Dates: start: 20030114
  4. HERBESSER R [Concomitant]
     Indication: HYPERTENSION
     Dosage: TOTAL DAILY DOSE: 200 MG
     Route: 048
     Dates: start: 20030114
  5. CODEINE SUL TAB [Concomitant]
     Indication: COUGH
     Dosage: TOTAL DAILY DOSE: 6 G
     Route: 048
     Dates: start: 20071102, end: 20080305

REACTIONS (2)
  - ANOREXIA [None]
  - NAUSEA [None]
